FAERS Safety Report 5376012-0 (Version None)
Quarter: 2007Q3

REPORT INFORMATION
  Report Type: 
  Country: None (occurrence: None)
  Receive Date: 20070702
  Receipt Date: 20070621
  Transmission Date: 20080115
  Serious: Yes (Hospitalization)
  Sender: FDA-Public Use
  Company Number: FR-JNJFOC-20070507130

PATIENT
  Sex: Male
  Weight: 117 kg

DRUGS (4)
  1. INFLIXIMAB [Suspect]
     Indication: PSORIASIS
     Dosage: 6 VIALS
     Route: 042
  2. EFFEXOR [Concomitant]
     Indication: DEPRESSION
     Route: 048
  3. METFORMIN HCL [Concomitant]
     Indication: DIABETES MELLITUS
     Route: 048
  4. IRBESARTAN [Concomitant]
     Indication: HYPERTENSION
     Route: 048

REACTIONS (2)
  - ARTHRITIS [None]
  - PYREXIA [None]
